FAERS Safety Report 4761864-5 (Version None)
Quarter: 2005Q3

REPORT INFORMATION
  Report Type: 
  Country: None (occurrence: None)
  Receive Date: 20050906
  Receipt Date: 20050829
  Transmission Date: 20060218
  Serious: Yes (Hospitalization)
  Sender: FDA-Public Use
  Company Number: US-BRISTOL-MYERS SQUIBB COMPANY-13099833

PATIENT
  Age: 71 Year
  Sex: Female

DRUGS (3)
  1. ERBITUX [Suspect]
     Indication: PANCREATIC CARCINOMA METASTATIC
     Route: 042
  2. GEMCITABINE [Suspect]
     Indication: PANCREATIC CARCINOMA METASTATIC
  3. RADIATION THERAPY [Suspect]
     Indication: PANCREATIC CARCINOMA METASTATIC

REACTIONS (3)
  - CEREBROVASCULAR ACCIDENT [None]
  - KLEBSIELLA INFECTION [None]
  - STENT OCCLUSION [None]
